FAERS Safety Report 23960517 (Version 1)
Quarter: 2024Q2

REPORT INFORMATION
  Report Type: Spontaneous
  Country: NL (occurrence: NL)
  Receive Date: 20240611
  Receipt Date: 20240611
  Transmission Date: 20240716
  Serious: Yes (Life-Threatening, Hospitalization, Other)
  Sender: FDA-Public Use
  Company Number: NL-SUN PHARMACEUTICAL INDUSTRIES LTD-2024RR-450490

PATIENT
  Age: 59 Year
  Sex: Female
  Weight: 81 kg

DRUGS (5)
  1. ATORVASTATIN [Suspect]
     Active Substance: ATORVASTATIN
     Indication: Hypercholesterolaemia
     Dosage: 20 MILLIGRAM, DAILY, 1 PIECE ONCE A DAY
     Route: 065
     Dates: start: 20231030, end: 20240108
  2. BECLOMETASON/FORMOTEROL AEROSOL 100/6UG/DO [Concomitant]
     Indication: Product used for unknown indication
     Dosage: AEROSOL, 100/6 MICROG/DOSIS (MICROGRAM PER DOSIS)
     Route: 065
  3. TACAL D3 KAUWTABLET 500MG/800IE SINAASAPPEL [Concomitant]
     Indication: Product used for unknown indication
     Dosage: CHEWABLE TABLET, 1.25 G (GRAM)/800 UNITS
     Route: 065
  4. FURABID CAPSULE MGA 100MG [Concomitant]
     Indication: Product used for unknown indication
     Dosage: MODIFIED-RELEASE CAPSULE, 100 MG (MILLIGRAM)
     Route: 065
  5. NEXIUM TABLET MSR 20MG [Concomitant]
     Indication: Product used for unknown indication
     Dosage: GASTRO-RESISTANT TABLET, 20 MG (MILLIGRAM)
     Route: 065

REACTIONS (4)
  - Hepatitis [Recovering/Resolving]
  - Polymyositis [Recovering/Resolving]
  - Labelled drug-food interaction issue [Recovering/Resolving]
  - Rhabdomyolysis [Recovering/Resolving]
